FAERS Safety Report 14204242 (Version 3)
Quarter: 2018Q1

REPORT INFORMATION
  Report Type: Spontaneous
  Country: DE (occurrence: DE)
  Receive Date: 20171120
  Receipt Date: 20180129
  Transmission Date: 20180508
  Serious: Yes (Other)
  Sender: FDA-Public Use
  Company Number: DE-B.I. PHARMACEUTICALS,INC./RIDGEFIELD-2017-BI-061582

PATIENT
  Age: 75 Year
  Sex: Male

DRUGS (4)
  1. VARGATEF [Suspect]
     Active Substance: NINTEDANIB
     Dosage: DAILY DOSE: 200 MG MILLIGRAM(S) EVERY DAY
     Route: 065
     Dates: start: 201412, end: 201507
  2. DOCETAXEL. [Concomitant]
     Active Substance: DOCETAXEL
     Indication: PRODUCT USED FOR UNKNOWN INDICATION
     Dosage: 75 MG/M2, D1, Q21D
     Route: 042
     Dates: start: 201409, end: 201412
  3. VARGATEF [Suspect]
     Active Substance: NINTEDANIB
     Indication: NON-SMALL CELL LUNG CANCER
     Dosage: DAILY DOSE: 400 MG MILLIGRAM(S) EVERY DAY
     Route: 065
     Dates: start: 201406, end: 201409
  4. VARGATEF [Suspect]
     Active Substance: NINTEDANIB
     Dosage: DAILY DOSE: 300 MG MILLIGRAM(S) EVERY DAY
     Route: 065
     Dates: start: 201409, end: 201412

REACTIONS (3)
  - Diarrhoea [Recovered/Resolved]
  - Metastases to lung [Recovered/Resolved with Sequelae]
  - Neoplasm progression [Recovered/Resolved with Sequelae]

NARRATIVE: CASE EVENT DATE: 201409
